FAERS Safety Report 25332654 (Version 2)
Quarter: 2025Q3

REPORT INFORMATION
  Report Type: Spontaneous
  Country: EU (occurrence: EU)
  Receive Date: 20250519
  Receipt Date: 20250919
  Transmission Date: 20251021
  Serious: Yes (Other)
  Sender: AMGEN
  Company Number: None

PATIENT
  Age: 27 Year
  Sex: Female

DRUGS (2)
  1. AIMOVIG [Suspect]
     Active Substance: ERENUMAB-AOOE
     Indication: Migraine prophylaxis
     Dosage: 70 MG, Q4W (70MG EVERY 4 WEEKS)
     Route: 058
     Dates: start: 20230616, end: 20240216
  2. AIMOVIG [Suspect]
     Active Substance: ERENUMAB-AOOE
     Dosage: 140 MG, Q4W (140 MG EVERY 4 WEEKS)
     Route: 058
     Dates: start: 20240216, end: 20250401

REACTIONS (1)
  - Loss of therapeutic response [Recovering/Resolving]

NARRATIVE: CASE EVENT DATE: 20250301
